FAERS Safety Report 9184904 (Version 1)
Quarter: 2013Q1

REPORT INFORMATION
  Report Type: Spontaneous
  Country: US (occurrence: US)
  Receive Date: 20130325
  Receipt Date: 20130325
  Transmission Date: 20140127
  Serious: Yes (Hospitalization)
  Sender: FDA-Public Use
  Company Number: US-BRISTOL-MYERS SQUIBB COMPANY-16525289

PATIENT
  Age: 70 Year
  Sex: Female

DRUGS (1)
  1. ERBITUX [Suspect]
     Indication: LIP AND/OR ORAL CAVITY CANCER
     Dosage: TREATMENTS-7
     Dates: end: 20120321

REACTIONS (7)
  - Infection [Unknown]
  - Nail disorder [Recovered/Resolved]
  - Onychalgia [Recovered/Resolved]
  - Skin disorder [Unknown]
  - Asthenia [Unknown]
  - Rash pruritic [Unknown]
  - Alopecia [Unknown]
